FAERS Safety Report 25526473 (Version 1)
Quarter: 2025Q3

REPORT INFORMATION
  Report Type: Spontaneous
  Country: EU (occurrence: EU)
  Receive Date: 20250707
  Receipt Date: 20250707
  Transmission Date: 20251020
  Serious: Yes (Death, Other)
  Sender: BRISTOL-MYERS SQUIBB COMPANY
  Company Number: EU-BRISTOL-MYERS SQUIBB COMPANY-2025-095514

PATIENT
  Age: 63 Year
  Sex: Male
  Weight: 64 kg

DRUGS (3)
  1. NIVOLUMAB [Suspect]
     Active Substance: NIVOLUMAB
     Indication: Pituitary tumour benign
     Route: 042
     Dates: start: 20241023, end: 20241226
  2. NIVOLUMAB [Suspect]
     Active Substance: NIVOLUMAB
     Route: 042
     Dates: start: 20250116, end: 20250116
  3. NELVUTAMIG [Suspect]
     Active Substance: NELVUTAMIG
     Indication: Pituitary tumour benign
     Route: 042
     Dates: start: 20241023, end: 20241226

REACTIONS (1)
  - Death [Fatal]
